FAERS Safety Report 6992155-X (Version None)
Quarter: 2010Q3

REPORT INFORMATION
  Report Type: 
  Country: None (occurrence: None)
  Receive Date: 20100915
  Receipt Date: 20100825
  Transmission Date: 20110219
  Serious: Yes (Death)
  Sender: FDA-Public Use
  Company Number: GER/UKI/10/0015583

PATIENT
  Age: 41 Year
  Sex: Male

DRUGS (1)
  1. SERTRALINE HYDROCHLORIDE [Suspect]
     Indication: PRODUCT USED FOR UNKNOWN INDICATION

REACTIONS (6)
  - DRUG TOXICITY [None]
  - FAECES HARD [None]
  - GASTROINTESTINAL HYPOMOTILITY [None]
  - INTESTINAL DILATATION [None]
  - PULMONARY CONGESTION [None]
  - PULMONARY OEDEMA [None]
